FAERS Safety Report 12925087 (Version 2)
Quarter: 2017Q1

REPORT INFORMATION
  Report Type: Not Available
  Country: FR (occurrence: FR)
  Receive Date: 20161108
  Receipt Date: 20170213
  Transmission Date: 20170428
  Serious: Yes (Hospitalization, Other)
  Sender: FDA-Public Use
  Company Number: FR-MUNDIPHARMA DS AND PHARMACOVIGILANCE-GBR-2016-0041385

PATIENT
  Age: 88 Year
  Sex: Female

DRUGS (18)
  1. OXYNORMORO [Suspect]
     Active Substance: OXYCODONE
     Indication: NEOPLASM MALIGNANT
     Dosage: 1X4/DAY
     Route: 048
     Dates: end: 20160817
  2. AMLODIPINE [Concomitant]
     Active Substance: AMLODIPINE BESYLATE
     Dosage: 5 MG, BID
  3. MIANSERINE [Concomitant]
     Active Substance: MIANSERIN HYDROCHLORIDE
     Dosage: 10 MG, TID [10MG 2/DAY FOR 7 DAYS THEN 3/DAY]
  4. OXYCONTIN [Suspect]
     Active Substance: OXYCODONE HYDROCHLORIDE
     Indication: NEOPLASM MALIGNANT
     Dosage: 10 MG, BID
     Route: 048
     Dates: end: 20160817
  5. OXYCONTIN [Suspect]
     Active Substance: OXYCODONE HYDROCHLORIDE
     Indication: PAIN
  6. BISOPROLOL [Concomitant]
     Active Substance: BISOPROLOL
     Dosage: 5 MG, DAILY
  7. OXYNORMORO [Suspect]
     Active Substance: OXYCODONE
     Indication: PAIN
  8. KARDEGIC [Concomitant]
     Active Substance: ASPIRIN LYSINE
     Dosage: 75 MG, DAILY
  9. MIANSERINE [Concomitant]
     Active Substance: MIANSERIN HYDROCHLORIDE
     Dosage: 10 MG, BID [10MG 2/DAY FOR 7 DAYS THEN 3/DAY]
  10. ZOLPIDEM [Concomitant]
     Active Substance: ZOLPIDEM\ZOLPIDEM TARTRATE
     Dosage: 10 MG, DAILY
  11. VALIUM [Concomitant]
     Active Substance: DIAZEPAM
     Indication: DEPRESSION
     Dosage: 3X3 IF ANXIOUSNESS
  12. RISPERDAL [Concomitant]
     Active Substance: RISPERIDONE
     Dosage: 0.25 MG, DAILY
  13. NORMACOL [Concomitant]
     Active Substance: KARAYA GUM
     Indication: CONSTIPATION
     Dosage: 1/DAY IF ABSENCE OF STOOL BEYOND 3 DAYS
  14. MACROGOL 4000 [Concomitant]
     Active Substance: POLYETHYLENE GLYCOL 4000
     Dosage: 2X3/DAY
  15. INEXIUM                            /01479302/ [Concomitant]
     Active Substance: ESOMEPRAZOLE MAGNESIUM
     Dosage: 40 MG, DAILY
  16. LEVOTHYROX [Concomitant]
     Active Substance: LEVOTHYROXINE
     Dosage: 75 MCG, DAILY
  17. LYRICA [Concomitant]
     Active Substance: PREGABALIN
     Dosage: 100 MG, TID
  18. VERSATIS [Concomitant]
     Active Substance: LIDOCAINE
     Dosage: 1/DAY

REACTIONS (6)
  - Overdose [Recovered/Resolved]
  - Cardiac failure [Recovered/Resolved]
  - Urinary retention [Recovered/Resolved]
  - Constipation [Recovered/Resolved]
  - Somnolence [Recovered/Resolved]
  - Pneumonia aspiration [Recovered/Resolved]

NARRATIVE: CASE EVENT DATE: 20160817
